FAERS Safety Report 20232633 (Version 1)
Quarter: 2021Q4

REPORT INFORMATION
  Report Type: Spontaneous
  Country: US (occurrence: None)
  Receive Date: 20211223
  Receipt Date: 20211223
  Transmission Date: 20220303
  Serious: Yes (Hospitalization)
  Sender: FDA-Public Use
  Company Number: None

PATIENT
  Sex: Female

DRUGS (1)
  1. STELARA [Suspect]
     Active Substance: USTEKINUMAB
     Indication: Colitis ulcerative
     Dosage: OTHER FREQUENCY : EVRY 8 WEEKS;?
     Route: 058
     Dates: start: 20210406

REACTIONS (9)
  - Memory impairment [None]
  - Escherichia test positive [None]
  - Weight decreased [None]
  - Diarrhoea [None]
  - Abdominal pain upper [None]
  - Fatigue [None]
  - Anal incontinence [None]
  - Migraine [None]
  - Depression [None]
